FAERS Safety Report 25949858 (Version 1)
Quarter: 2025Q4

REPORT INFORMATION
  Report Type: Spontaneous
  Country: TW (occurrence: TW)
  Receive Date: 20251022
  Receipt Date: 20251022
  Transmission Date: 20260118
  Serious: Yes (Other)
  Sender: BIOMARIN
  Company Number: TW-BIOMARINAP-TW-2025-169529

PATIENT

DRUGS (1)
  1. KUVAN [Suspect]
     Active Substance: SAPROPTERIN DIHYDROCHLORIDE
     Indication: Foetal exposure during pregnancy
     Dosage: 1000 MILLIGRAM, QD
     Route: 064
     Dates: start: 20180201

REACTIONS (3)
  - Foetal heart rate abnormal [Unknown]
  - Foetal growth restriction [Unknown]
  - Foetal disorder [Unknown]
